FAERS Safety Report 21676525 (Version 2)
Quarter: 2022Q4

REPORT INFORMATION
  Report Type: Report from Study
  Country: FR (occurrence: None)
  Receive Date: 20221202
  Receipt Date: 20221213
  Transmission Date: 20230112
  Serious: Yes (Death)
  Sender: FDA-Public Use
  Company Number: 2022A390875

PATIENT
  Age: 848 Month
  Sex: Female
  Weight: 52 kg

DRUGS (2)
  1. EVUSHELD [Suspect]
     Active Substance: CILGAVIMAB\TIXAGEVIMAB
     Indication: COVID-19 prophylaxis
     Dosage: TIXAGEVIMAB 150 MG/CILGAVIMAB 150 MG ONCE/SINGLE ADMINISTRATION
     Route: 030
     Dates: start: 20220110
  2. TALQUETAMAB [Concomitant]
     Active Substance: TALQUETAMAB
     Indication: Plasma cell myeloma

REACTIONS (2)
  - Plasma cell myeloma [Fatal]
  - COVID-19 [Unknown]

NARRATIVE: CASE EVENT DATE: 20220301
